FAERS Safety Report 5474591-6 (Version None)
Quarter: 2007Q4

REPORT INFORMATION
  Report Type: 
  Country: None (occurrence: None)
  Receive Date: 20071002
  Receipt Date: 20070925
  Transmission Date: 20080405
  Serious: Yes (Other)
  Sender: FDA-Public Use
  Company Number: PHEH2007US12850

PATIENT
  Sex: Female

DRUGS (5)
  1. ZELNORM [Suspect]
     Indication: IRRITABLE BOWEL SYNDROME
     Dosage: UNK, BID
     Route: 048
     Dates: start: 20070201, end: 20070301
  2. BEANO [Concomitant]
     Dates: end: 20070301
  3. ZANTAC [Concomitant]
     Dates: end: 20070301
  4. EQUATE [Concomitant]
  5. PREMARIN [Concomitant]

REACTIONS (5)
  - CARDIAC DISORDER [None]
  - CHEST DISCOMFORT [None]
  - FATIGUE [None]
  - HYPOAESTHESIA [None]
  - MUSCULAR WEAKNESS [None]
